FAERS Safety Report 4785926-1 (Version None)
Quarter: 2005Q3

REPORT INFORMATION
  Report Type: 
  Country: None (occurrence: None)
  Receive Date: 20050930
  Receipt Date: 20050928
  Transmission Date: 20060218
  Serious: Yes (Disabling, Other)
  Sender: FDA-Public Use
  Company Number: 200510173BFR

PATIENT
  Age: 80 Year
  Sex: Female

DRUGS (2)
  1. CIPROFLOXACIN HCL [Suspect]
     Indication: CHOLECYSTITIS
     Dosage: 1 G, TOTAL DAILY, ORAL
     Route: 048
     Dates: start: 20040901
  2. ARICEPT [Concomitant]

REACTIONS (2)
  - ARTHROPATHY [None]
  - C-REACTIVE PROTEIN INCREASED [None]
